FAERS Safety Report 5500458-0 (Version None)
Quarter: 2007Q4

REPORT INFORMATION
  Report Type: 
  Country: None (occurrence: None)
  Receive Date: 20071029
  Receipt Date: 20071018
  Transmission Date: 20080405
  Serious: Yes (Other)
  Sender: FDA-Public Use
  Company Number: DE-JNJFOC-20071004939

PATIENT
  Sex: Female

DRUGS (1)
  1. REMICADE [Suspect]
     Indication: DRUG USE FOR UNKNOWN INDICATION
     Dosage: 6 INFUSIONS
     Route: 042

REACTIONS (3)
  - INFUSION RELATED REACTION [None]
  - TEMPORAL ARTERITIS [None]
  - URTICARIA [None]
